FAERS Safety Report 10171424 (Version 1)
Quarter: 2014Q2

REPORT INFORMATION
  Report Type: Spontaneous
  Country: CA (occurrence: CA)
  Receive Date: 20140514
  Receipt Date: 20140514
  Transmission Date: 20141212
  Serious: Yes (Hospitalization, Other)
  Sender: FDA-Public Use
  Company Number: CA-ASTRAZENECA-2014SE30965

PATIENT
  Age: 60 Year
  Sex: Male

DRUGS (1)
  1. BRILINTA [Suspect]
     Route: 048

REACTIONS (2)
  - Acute myocardial infarction [Unknown]
  - Pericardial haemorrhage [Unknown]
